FAERS Safety Report 9000734 (Version 2)
Quarter: 2013Q1

REPORT INFORMATION
  Report Type: Spontaneous
  Country: CR (occurrence: CR)
  Receive Date: 20130107
  Receipt Date: 20130129
  Transmission Date: 20140127
  Serious: Yes (Other)
  Sender: FDA-Public Use
  Company Number: CR-JNJFOC-20130100935

PATIENT
  Sex: 0

DRUGS (2)
  1. INFLIXIMAB, RECOMBINANT [Suspect]
     Indication: DIABETIC RETINAL OEDEMA
     Dosage: 3 INJECTIONS
     Route: 050
     Dates: start: 200903, end: 200905
  2. INFLIXIMAB, RECOMBINANT [Suspect]
     Indication: DIABETIC RETINAL OEDEMA
     Dosage: 3 INJECTIONS
     Route: 050
     Dates: start: 200903, end: 200905

REACTIONS (3)
  - Uveitis [Unknown]
  - Drug ineffective for unapproved indication [Unknown]
  - Off label use [Unknown]
